FAERS Safety Report 20702052 (Version 1)
Quarter: 2022Q2

REPORT INFORMATION
  Report Type: Spontaneous
  Country: US (occurrence: US)
  Receive Date: 20220412
  Receipt Date: 20220412
  Transmission Date: 20220721
  Serious: Yes (Other)
  Sender: FDA-Public Use
  Company Number: US-TEVA-2022-US-2025929

PATIENT
  Sex: Female

DRUGS (2)
  1. CABERGOLINE [Suspect]
     Active Substance: CABERGOLINE
     Indication: Prolactin-producing pituitary tumour
     Dosage: 0.25 MG ONCE A WEEK
     Route: 048
     Dates: start: 2009
  2. CABERGOLINE [Suspect]
     Active Substance: CABERGOLINE
     Dosage: 0.25 MG TWICE A WEEK
     Route: 048

REACTIONS (6)
  - Balance disorder [Unknown]
  - Dizziness [Unknown]
  - Anxiety [Unknown]
  - Panic attack [Unknown]
  - Empty sella syndrome [Recovering/Resolving]
  - Hemianopia heteronymous [Recovering/Resolving]
